FAERS Safety Report 7474710-6 (Version None)
Quarter: 2011Q2

REPORT INFORMATION
  Report Type: 
  Country: None (occurrence: None)
  Receive Date: 20110509
  Receipt Date: 20110509
  Transmission Date: 20111010
  Serious: Yes (Death)
  Sender: FDA-Public Use
  Company Number: None

PATIENT
  Sex: Male
  Weight: 96.7 kg

DRUGS (2)
  1. ZOLADEX [Suspect]
     Dosage: 10.8 MG
  2. CASODEX [Suspect]
     Dosage: 2100 MG

REACTIONS (4)
  - CARDIAC DISORDER [None]
  - PROSTATE CANCER [None]
  - CHRONIC OBSTRUCTIVE PULMONARY DISEASE [None]
  - CEREBROVASCULAR ACCIDENT [None]
